FAERS Safety Report 6064167-4 (Version None)
Quarter: 2009Q1

REPORT INFORMATION
  Report Type: 
  Country: None (occurrence: None)
  Receive Date: 20090203
  Receipt Date: 20090203
  Transmission Date: 20090719
  Serious: No
  Sender: FDA-Public Use
  Company Number: None

PATIENT
  Sex: Female

DRUGS (1)
  1. CITALOPRAM HYDROBROMIDE [Suspect]
     Dosage: TAKE ONE TABLET BY MOUTH ONCE DAILY.
     Route: 048

REACTIONS (2)
  - BALANCE DISORDER [None]
  - DIZZINESS [None]
